FAERS Safety Report 6355310-8 (Version None)
Quarter: 2009Q3

REPORT INFORMATION
  Report Type: 
  Country: None (occurrence: None)
  Receive Date: 20090914
  Receipt Date: 20090902
  Transmission Date: 20100115
  Serious: Yes (Other)
  Sender: FDA-Public Use
  Company Number: PHHY2009AU35022

PATIENT
  Sex: Male

DRUGS (9)
  1. CLOZARIL [Suspect]
     Indication: SCHIZOPHRENIA
     Dosage: 125 MG
     Dates: start: 20090804
  2. CLOZARIL [Suspect]
     Dosage: 50 MG MANE, 125 MG NOCTE
     Dates: start: 20090828
  3. CLOZARIL [Suspect]
     Dosage: UNK
     Dates: end: 20090831
  4. DULOXETINE [Concomitant]
     Dosage: 120 MG MANE
     Route: 048
  5. WAXSOL [Concomitant]
     Dosage: IN BOTH EARS TWICE ON SUNDAY
  6. METAMUCIL [Concomitant]
     Dosage: 1 TSP, BID
     Route: 048
     Dates: start: 20090811
  7. SORBOLENE [Concomitant]
     Route: 061
  8. HYDROCORTISONE [Concomitant]
     Indication: RASH
     Dosage: AT NIGHT
     Route: 061
     Dates: start: 20090807
  9. ACETAMINOPHEN [Concomitant]
     Dosage: 1 GM ONCE DAILY AS REQUIRED
     Route: 048

REACTIONS (13)
  - BLOOD CREATINE PHOSPHOKINASE MB INCREASED [None]
  - BLOOD CREATININE INCREASED [None]
  - C-REACTIVE PROTEIN INCREASED [None]
  - DIZZINESS [None]
  - ELECTROCARDIOGRAM T WAVE INVERSION [None]
  - EOSINOPHIL COUNT INCREASED [None]
  - LYMPHOCYTOSIS [None]
  - NEUTROPHILIA [None]
  - PYREXIA [None]
  - SINUS TACHYCARDIA [None]
  - TACHYCARDIA [None]
  - TROPONIN INCREASED [None]
  - VIRAL INFECTION [None]
